FAERS Safety Report 14270790 (Version 1)
Quarter: 2017Q4

REPORT INFORMATION
  Report Type: Spontaneous
  Country: JP (occurrence: JP)
  Receive Date: 20171211
  Receipt Date: 20171211
  Transmission Date: 20180321
  Serious: Yes (Death)
  Sender: FDA-Public Use
  Company Number: JP-OTSUKA-BJ20062144

PATIENT
  Age: 67 Year
  Sex: Female

DRUGS (13)
  1. ATORVASTATIN [Suspect]
     Active Substance: ATORVASTATIN
     Indication: HYPERLIPIDAEMIA
     Dosage: 10 MG, QD
     Route: 048
     Dates: start: 20011027, end: 20060913
  2. TRIAZOLAM. [Suspect]
     Active Substance: TRIAZOLAM
     Indication: INSOMNIA
     Dosage: .25 MG, QD
     Route: 048
     Dates: start: 20041127, end: 20060912
  3. TRIFLUOPERAZINE [Suspect]
     Active Substance: TRIFLUOPERAZINE\TRIFLUOPERAZINE HYDROCHLORIDE
     Indication: SCHIZOPHRENIA
     Dosage: 2.5 MG, TID
     Route: 048
     Dates: start: 20041225, end: 20060913
  4. DEFEKTON /00753202/ [Suspect]
     Active Substance: CARPIPRAMINE DIHYDROCHLORIDE
     Indication: SCHIZOPHRENIA
     Dosage: 50 MG, TID
     Route: 048
     Dates: start: 20041225, end: 20060901
  5. SEDRENA [Suspect]
     Active Substance: TRIHEXYPHENIDYL HYDROCHLORIDE
     Indication: PARKINSONISM
     Dosage: 4 MG, TID
     Route: 048
     Dates: start: 20041225, end: 20060901
  6. LIPITOR [Suspect]
     Active Substance: ATORVASTATIN CALCIUM
     Indication: HYPERLIPIDAEMIA
     Dosage: 10 MG, QD
     Route: 048
     Dates: start: 20011027, end: 20060913
  7. SEDRENA [Suspect]
     Active Substance: TRIHEXYPHENIDYL HYDROCHLORIDE
     Dosage: 2 MG, TID
     Route: 048
     Dates: start: 20060902, end: 20060913
  8. ABILIFY [Suspect]
     Active Substance: ARIPIPRAZOLE
     Dosage: 6 MG, BID
     Route: 048
     Dates: start: 20060902, end: 20060913
  9. LEXOTAN [Suspect]
     Active Substance: BROMAZEPAM
     Indication: SCHIZOPHRENIA
     Dosage: 2 MG, TID
     Route: 048
     Dates: start: 20041225, end: 20060913
  10. ABILIFY [Suspect]
     Active Substance: ARIPIPRAZOLE
     Indication: SCHIZOPHRENIA
     Dosage: 6 MG, QD
     Route: 048
     Dates: start: 20060811, end: 20060901
  11. HALCION [Suspect]
     Active Substance: TRIAZOLAM
     Indication: INSOMNIA
     Dosage: 0.25 MG, QD
     Route: 048
     Dates: start: 20041127, end: 20060912
  12. DEFEKTON                           /00753202/ [Suspect]
     Active Substance: CARPIPRAMINE DIHYDROCHLORIDE
     Dosage: 25 MG, TID
     Route: 048
     Dates: start: 20060902, end: 20060913
  13. CARPIPRAMINE HCL [Suspect]
     Active Substance: CARPIPRAMINE DIHYDROCHLORIDE
     Indication: SCHIZOPHRENIA
     Dosage: 25-DEC-06 TO 1-SEP-06 DOSE WAS 150MG, DRUG STOPPED THEN RESTARTED FROM 2-SEP-06 TO 13-SEP-06 (75MG)
     Route: 048
     Dates: start: 20041225, end: 20060913

REACTIONS (1)
  - Cardiac failure congestive [Fatal]

NARRATIVE: CASE EVENT DATE: 20060913
